FAERS Safety Report 5512445-7 (Version None)
Quarter: 2007Q4

REPORT INFORMATION
  Report Type: 
  Country: None (occurrence: None)
  Receive Date: 20071112
  Receipt Date: 20061227
  Transmission Date: 20080405
  Serious: No
  Sender: FDA-Public Use
  Company Number: A0632631A

PATIENT
  Age: 63 Year
  Sex: Female

DRUGS (6)
  1. AVANDAMET [Suspect]
     Dosage: 2TAB TWICE PER DAY
     Route: 048
     Dates: start: 20061112, end: 20061210
  2. AVANDIA [Suspect]
     Dosage: 8MG PER DAY
     Route: 048
     Dates: start: 20061102, end: 20061224
  3. LEVAQUIN [Concomitant]
  4. HYZAAR [Concomitant]
  5. VYTORIN [Concomitant]
  6. LOPRESSOR [Concomitant]

REACTIONS (11)
  - ABDOMINAL PAIN UPPER [None]
  - ANOREXIA [None]
  - BLOOD GLUCOSE INCREASED [None]
  - DIARRHOEA [None]
  - DYSGEUSIA [None]
  - LUNG DISORDER [None]
  - ORAL DISCOMFORT [None]
  - SKIN ODOUR ABNORMAL [None]
  - SLEEP DISORDER [None]
  - SOMNOLENCE [None]
  - WEIGHT DECREASED [None]
